FAERS Safety Report 15778484 (Version 1)
Quarter: 2018Q4

REPORT INFORMATION
  Report Type: Report from Study
  Country: RO (occurrence: RO)
  Receive Date: 20181231
  Receipt Date: 20181231
  Transmission Date: 20190205
  Serious: Yes (Other)
  Sender: FDA-Public Use
  Company Number: RO-GILEAD-2018-0382136

PATIENT
  Age: 58 Year
  Sex: Female

DRUGS (4)
  1. BETALOC [METOPROLOL SUCCINATE] [Concomitant]
     Indication: HYPERTENSION
  2. LEDIPASVIR/SOFOSBUVIR [Suspect]
     Active Substance: LEDIPASVIR\SOFOSBUVIR
     Indication: CHRONIC HEPATITIS C
     Dosage: 1 TABLET, QD
     Route: 048
     Dates: start: 20181217
  3. PRESTARIUM [PERINDOPRIL ARGININE] [Concomitant]
     Indication: HYPERTENSION
  4. TENOX [AMLODIPINE BESILATE] [Concomitant]
     Indication: HYPERTENSION

REACTIONS (3)
  - Syncope [Not Recovered/Not Resolved]
  - Fatigue [Recovered/Resolved]
  - Dizziness [Not Recovered/Not Resolved]

NARRATIVE: CASE EVENT DATE: 20181217
